FAERS Safety Report 15777876 (Version 1)
Quarter: 2018Q4

REPORT INFORMATION
  Report Type: Spontaneous
  Country: US (occurrence: US)
  Receive Date: 20181212
  Receipt Date: 20181212
  Transmission Date: 20190205
  Serious: Yes (Hospitalization)
  Sender: FDA-Public Use
  Company Number: None

PATIENT
  Age: 44 Year
  Sex: Female
  Weight: 122.92 kg

DRUGS (1)
  1. APIXABAN 5MG [Suspect]
     Active Substance: APIXABAN
     Indication: PRODUCT USED FOR UNKNOWN INDICATION
     Route: 048
     Dates: start: 20181110

REACTIONS (2)
  - Post procedural complication [None]
  - Small intestinal obstruction [None]

NARRATIVE: CASE EVENT DATE: 20181128
